FAERS Safety Report 6575660-X (Version None)
Quarter: 2010Q1

REPORT INFORMATION
  Report Type: 
  Country: None (occurrence: None)
  Receive Date: 20100209
  Receipt Date: 20100203
  Transmission Date: 20100710
  Serious: Yes (Death)
  Sender: FDA-Public Use
  Company Number: BE-MERCK-1002BEL00004

PATIENT
  Age: 48 Year
  Sex: Male
  Weight: 79 kg

DRUGS (8)
  1. CANCIDAS [Suspect]
     Indication: FUNGAL INFECTION
     Route: 041
     Dates: start: 20090507, end: 20090507
  2. AMIKACIN [Concomitant]
     Indication: BACTERIAL INFECTION
     Route: 042
     Dates: start: 20091002, end: 20091005
  3. LINEZOLID [Concomitant]
     Indication: BACTERIAL INFECTION
     Route: 065
     Dates: start: 20090924, end: 20090927
  4. AMPHOTERICIN B AND L-(ALPHA)-DIMYRISTOYLPHOSPHATIDYLCHOLINE AND L-(ALP [Concomitant]
     Indication: FUNGAL INFECTION
     Route: 041
     Dates: start: 20090930, end: 20091006
  5. VORICONAZOLE [Concomitant]
     Indication: FUNGAL INFECTION
     Route: 048
     Dates: start: 20090925, end: 20090928
  6. VORICONAZOLE [Concomitant]
     Route: 048
     Dates: start: 20091002, end: 20091006
  7. VORICONAZOLE [Concomitant]
     Indication: PROPHYLAXIS
     Route: 048
     Dates: start: 20090925, end: 20090928
  8. VORICONAZOLE [Concomitant]
     Route: 048
     Dates: start: 20091002, end: 20091006

REACTIONS (2)
  - BACTERIAL INFECTION [None]
  - ORGAN FAILURE [None]
